FAERS Safety Report 4286663-2 (Version None)
Quarter: 2004Q1

REPORT INFORMATION
  Report Type: 
  Country: None (occurrence: None)
  Receive Date: 20040204
  Receipt Date: 20040127
  Transmission Date: 20041129
  Serious: Yes (Hospitalization)
  Sender: FDA-Public Use
  Company Number: FRWYE540128JAN04

PATIENT
  Age: 51 Year
  Sex: Male

DRUGS (6)
  1. RAPAMUNE [Suspect]
     Indication: PROPHYLAXIS AGAINST TRANSPLANT REJECTION
     Dosage: 3 MG 1 X PER 1 DAY, ORAL
     Route: 048
     Dates: start: 20030812
  2. CELLCEPT [Suspect]
     Dosage: 2 G 1 X PER 1 DAY, ORAL
     Route: 048
  3. PREDNISOLONE [Concomitant]
  4. ATENOLOL [Concomitant]
  5. TAHOR (ATORVASTATIN) [Concomitant]
  6. LERCANIDIPINE [Concomitant]

REACTIONS (2)
  - PYELOCALIECTASIS [None]
  - RENAL FAILURE ACUTE [None]
